FAERS Safety Report 5304880-7 (Version None)
Quarter: 2007Q2

REPORT INFORMATION
  Report Type: 
  Country: None (occurrence: None)
  Receive Date: 20070423
  Receipt Date: 20070412
  Transmission Date: 20071010
  Serious: Yes (Other)
  Sender: FDA-Public Use
  Company Number: FR-PFIZER INC-2007030098

PATIENT
  Age: 54 Year
  Sex: Male

DRUGS (1)
  1. CELEBREX [Suspect]
     Indication: SCIATICA

REACTIONS (1)
  - CONFUSIONAL STATE [None]
